FAERS Safety Report 8512886-X (Version None)
Quarter: 2012Q3

REPORT INFORMATION
  Report Type: 
  Country: None (occurrence: None)
  Receive Date: 20120716
  Receipt Date: 20120708
  Transmission Date: 20120928
  Serious: Yes (Death, Hospitalization)
  Sender: FDA-Public Use
  Company Number: PHEH2012US013592

PATIENT
  Sex: Male

DRUGS (2)
  1. FAMPRIDINE [Concomitant]
  2. GILENYA [Suspect]
     Dosage: 0.5 MG, QD
     Route: 048
     Dates: start: 20110901

REACTIONS (1)
  - DEATH [None]
